FAERS Safety Report 16460257 (Version 2)
Quarter: 2019Q2

REPORT INFORMATION
  Report Type: Report from Study
  Country: DE (occurrence: DE)
  Receive Date: 20190620
  Receipt Date: 20190625
  Transmission Date: 20190711
  Serious: Yes (Life-Threatening, Hospitalization, Other)
  Sender: FDA-Public Use
  Company Number: DE-AMGEN-DEUCT2019097895

PATIENT
  Age: 65 Year
  Sex: Female
  Weight: 103 kg

DRUGS (9)
  1. HCT [Concomitant]
     Active Substance: HYDROCHLOROTHIAZIDE
     Indication: HYPERTENSION
  2. LENALIDOMIDE [Suspect]
     Active Substance: LENALIDOMIDE
     Indication: PLASMA CELL MYELOMA
     Dosage: 25 MILLIGRAM, PER CHEMO REGIM
     Route: 048
     Dates: start: 20190613
  3. DEXAMETHASONE. [Suspect]
     Active Substance: DEXAMETHASONE
     Dosage: 08 MILLIGRAM, PER CHEMO REGIM
     Route: 042
  4. ISOTONIC SODIUM CHLORIDE SOLUTION [Concomitant]
     Active Substance: SODIUM CHLORIDE
     Dosage: 1 LITER, QD
     Route: 042
     Dates: start: 20190612, end: 20190616
  5. CARFILZOMIB [Suspect]
     Active Substance: CARFILZOMIB
     Indication: PLASMA CELL MYELOMA
     Dosage: 20 MILLIGRAM/SQ. METER, PER CHEMO REGIM
     Route: 042
     Dates: start: 20190613
  6. ELOTUZUMAB. [Suspect]
     Active Substance: ELOTUZUMAB
     Indication: PLASMA CELL MYELOMA
     Dosage: 10 MILLIGRAM/KILOGRAM, PER CHEMO REGIM
     Route: 042
     Dates: start: 20190613
  7. HCT [Concomitant]
     Active Substance: HYDROCHLOROTHIAZIDE
     Indication: DIURETIC THERAPY
     Dosage: UNK
  8. DEXAMETHASONE. [Suspect]
     Active Substance: DEXAMETHASONE
     Indication: PLASMA CELL MYELOMA
     Dosage: 2.8 MILLIGRAM, PER CHEMO REGIM
     Route: 048
     Dates: start: 20190613
  9. HCT [Concomitant]
     Active Substance: HYDROCHLOROTHIAZIDE
     Indication: HYPERTENSION

REACTIONS (1)
  - Pulmonary oedema [Not Recovered/Not Resolved]

NARRATIVE: CASE EVENT DATE: 20190617
